FAERS Safety Report 20078259 (Version 1)
Quarter: 2021Q4

REPORT INFORMATION
  Report Type: Spontaneous
  Country: FR (occurrence: FR)
  Receive Date: 20211117
  Receipt Date: 20211117
  Transmission Date: 20220303
  Serious: Yes (Other)
  Sender: FDA-Public Use
  Company Number: FR-EMA-DD-20211027-singh_a19-160706

PATIENT

DRUGS (1)
  1. PREGABALIN [Suspect]
     Active Substance: PREGABALIN
     Indication: Accidental exposure to product by child
     Dosage: IMMEDIATE-RELEASE CAPSULE
     Route: 048

REACTIONS (5)
  - Vertigo [Unknown]
  - Dysarthria [Unknown]
  - Accidental exposure to product by child [Unknown]
  - Abdominal pain [Unknown]
  - Mydriasis [Unknown]
